FAERS Safety Report 5381253-2 (Version None)
Quarter: 2007Q3

REPORT INFORMATION
  Report Type: 
  Country: None (occurrence: None)
  Receive Date: 20070706
  Receipt Date: 20070625
  Transmission Date: 20080115
  Serious: Yes (Other)
  Sender: FDA-Public Use
  Company Number: US-PFIZER INC-2007053799

PATIENT
  Sex: Female
  Weight: 46.3 kg

DRUGS (8)
  1. CHANTIX [Suspect]
     Indication: SMOKING CESSATION THERAPY
     Dates: start: 20070501, end: 20070625
  2. ZOLOFT [Suspect]
     Indication: PAIN
  3. ZOLOFT [Suspect]
     Indication: SLEEP DISORDER
  4. KLONOPIN [Concomitant]
     Indication: ANXIETY
  5. CALCIUM CHLORIDE [Concomitant]
  6. VITAMIN B-12 [Concomitant]
  7. PREMARIN [Concomitant]
  8. FOSAMAX [Concomitant]

REACTIONS (2)
  - PHARYNGEAL INJURY [None]
  - VOMITING [None]
